FAERS Safety Report 16901758 (Version 2)
Quarter: 2019Q4

REPORT INFORMATION
  Report Type: Report from Study
  Country: None (occurrence: CH)
  Receive Date: 20191010
  Receipt Date: 20191105
  Transmission Date: 20200122
  Serious: Yes (Hospitalization)
  Sender: FDA-Public Use
  Company Number: CH-ABBVIE-19K-151-2953469-00

PATIENT
  Age: 72 Year
  Sex: Female

DRUGS (3)
  1. DUODOPA [Suspect]
     Active Substance: CARBIDOPA\LEVODOPA
     Dosage: MD 4ML, CRD 3.8ML/H, CRN 2.9ML/H, ED 1.5ML, 24H THERAPY
     Route: 050
     Dates: start: 20181020
  2. DUODOPA [Suspect]
     Active Substance: CARBIDOPA\LEVODOPA
     Dosage: MD 4ML, CRD 3.8ML/H, CRN 2ML/H, ED 1.5ML, 24H THERAPY
     Route: 050
     Dates: start: 20181018, end: 20181020
  3. DUODOPA [Suspect]
     Active Substance: CARBIDOPA\LEVODOPA
     Indication: PARKINSON^S DISEASE
     Route: 050
     Dates: start: 20181015, end: 20181018

REACTIONS (4)
  - Pain in extremity [Recovered/Resolved]
  - Arthritis [Recovered/Resolved]
  - Skin discolouration [Recovered/Resolved]
  - Carpal tunnel syndrome [Recovered/Resolved]

NARRATIVE: CASE EVENT DATE: 201909
